FAERS Safety Report 9013665 (Version 1)
Quarter: 2013Q1

REPORT INFORMATION
  Report Type: Spontaneous
  Country: US (occurrence: None)
  Receive Date: 20130109
  Receipt Date: 20130109
  Transmission Date: 20140127
  Serious: Yes (Hospitalization)
  Sender: FDA-Public Use
  Company Number: None

PATIENT
  Age: 83 Year
  Sex: Male
  Weight: 67.6 kg

DRUGS (2)
  1. AMOXICILLIN [Suspect]
     Indication: URINARY TRACT INFECTION
     Route: 048
     Dates: start: 20120613, end: 20121107
  2. NIACIN (NIASPAN) [Suspect]
     Indication: HYPERLIPIDAEMIA
     Route: 048
     Dates: start: 20110131, end: 20121107

REACTIONS (10)
  - Fatigue [None]
  - Weight decreased [None]
  - Pancytopenia [None]
  - Liver injury [None]
  - Faeces pale [None]
  - Nausea [None]
  - Night sweats [None]
  - Oedema peripheral [None]
  - Cholestasis [None]
  - Hepatotoxicity [None]
